FAERS Safety Report 5099177-7 (Version None)
Quarter: 2006Q3

REPORT INFORMATION
  Report Type: 
  Country: None (occurrence: None)
  Receive Date: 20060728
  Receipt Date: 20060516
  Transmission Date: 20061208
  Serious: No
  Sender: FDA-Public Use
  Company Number: COT_0557_2006

PATIENT
  Age: 72 Year
  Sex: Male
  Weight: 93.441 kg

DRUGS (35)
  1. VENTAVIS [Suspect]
     Indication: PULMONARY HYPERTENSION
     Dosage: 5 MCG 6XD IH
     Route: 055
     Dates: start: 20060407
  2. TARCEVA [Concomitant]
  3. AVODART [Concomitant]
  4. SPIRIVA [Concomitant]
  5. MIRAPEX [Concomitant]
  6. CLONIDINE [Concomitant]
  7. VITAMIN E [Concomitant]
  8. CALCIUM GLUCONATE [Concomitant]
  9. NEXIUM [Concomitant]
  10. SEREVENT [Concomitant]
  11. ACIDOPHILUS [Concomitant]
  12. VITAMIN B COMPLEX CAP [Concomitant]
  13. NASONEX [Concomitant]
  14. DIOVAN [Concomitant]
  15. AMBIEN [Concomitant]
  16. NORVASC [Concomitant]
  17. NEURONTIN [Concomitant]
  18. TRACLEER [Concomitant]
  19. ATENOLOL [Concomitant]
  20. MAGNESIUM OXIDE [Concomitant]
  21. TERAZOSIN HCL [Concomitant]
  22. ASPIRIN [Concomitant]
  23. LIPITOR [Concomitant]
  24. MANGANESE [Concomitant]
  25. ZINC [Concomitant]
  26. ALFALFA [Concomitant]
  27. FISH OIL OMEGA [Concomitant]
  28. BIOFLAVANOIDS [Concomitant]
  29. ASCORBIC ACID [Concomitant]
  30. MULTI-VITAMIN [Concomitant]
  31. TYLENOL [Concomitant]
  32. NIACIN [Concomitant]
  33. GARLIC [Concomitant]
  34. PROSCAR [Concomitant]
  35. ALLEGRA-D 12 HOUR [Concomitant]

REACTIONS (3)
  - DYSPNOEA [None]
  - FATIGUE [None]
  - INSOMNIA [None]
